FAERS Safety Report 20667551 (Version 2)
Quarter: 2022Q2

REPORT INFORMATION
  Report Type: Spontaneous
  Country: JP (occurrence: JP)
  Receive Date: 20220404
  Receipt Date: 20220413
  Transmission Date: 20220721
  Serious: Yes (Hospitalization, Other)
  Sender: FDA-Public Use
  Company Number: JP-SUN PHARMACEUTICAL INDUSTRIES LTD-2022RR-331927

PATIENT
  Age: 83 Year
  Sex: Male
  Weight: 59 kg

DRUGS (4)
  1. CAPECITABINE [Suspect]
     Active Substance: CAPECITABINE
     Indication: Colon cancer metastatic
     Dosage: 3000 MILLIGRAM, DAILY, DAY 1-14
     Route: 065
  2. CAPECITABINE [Suspect]
     Active Substance: CAPECITABINE
     Dosage: 2400 MILLIGRAM, DAILY
     Route: 065
  3. CAPECITABINE [Suspect]
     Active Substance: CAPECITABINE
     Dosage: 1800 MILLIGRAM, DAILY
     Route: 065
  4. BEVACIZUMAB [Suspect]
     Active Substance: BEVACIZUMAB
     Indication: Colon cancer metastatic
     Dosage: 7.5 MILLIGRAM/KILOGRAM, DAY 1 EVERY 3 WEEKS
     Route: 065

REACTIONS (2)
  - Palmar-plantar erythrodysaesthesia syndrome [Unknown]
  - Therapeutic product effect incomplete [Unknown]
